FAERS Safety Report 15808979 (Version 1)
Quarter: 2019Q1

REPORT INFORMATION
  Report Type: Spontaneous
  Country: DK (occurrence: DK)
  Receive Date: 20190110
  Receipt Date: 20190110
  Transmission Date: 20190417
  Serious: Yes (Hospitalization)
  Sender: FDA-Public Use
  Company Number: PHHY2019DK002809

PATIENT
  Age: 61 Year
  Sex: Female

DRUGS (2)
  1. ZOMETA [Suspect]
     Active Substance: ZOLEDRONIC ACID
     Indication: BREAST CANCER
     Dosage: 4 MG, Q4W
     Route: 042
     Dates: start: 20141014, end: 20150223
  2. XGEVA [Suspect]
     Active Substance: DENOSUMAB
     Indication: BREAST CANCER
     Dosage: 1.7 ML, Q4W
     Route: 058
     Dates: start: 20150523, end: 20181030

REACTIONS (1)
  - Osteonecrosis of jaw [Unknown]
